FAERS Safety Report 5526160-7 (Version None)
Quarter: 2007Q4

REPORT INFORMATION
  Report Type: 
  Country: None (occurrence: None)
  Receive Date: 20071120
  Receipt Date: 20071105
  Transmission Date: 20080405
  Serious: Yes (Other)
  Sender: FDA-Public Use
  Company Number: 2007S1011509

PATIENT
  Age: 42 Year
  Sex: Male

DRUGS (2)
  1. BISOPROLOL TABLETS (NO PREF. NAME) [Suspect]
     Dosage: 5 MG;DAILY
     Dates: start: 20071008, end: 20071015
  2. LISINOPRIL [Concomitant]

REACTIONS (1)
  - LIP SWELLING [None]
